FAERS Safety Report 8477895-8 (Version None)
Quarter: 2012Q2

REPORT INFORMATION
  Report Type: 
  Country: None (occurrence: None)
  Receive Date: 20120629
  Receipt Date: 20120620
  Transmission Date: 20120825
  Serious: Yes (Hospitalization)
  Sender: FDA-Public Use
  Company Number: US-BAYER-2012-052365

PATIENT
  Age: 31 Year
  Sex: Female

DRUGS (13)
  1. ANTIBIOTICS [Concomitant]
     Indication: LOBAR PNEUMONIA
  2. DROSPIRENONE AND ETHINYL ESTRADIOL [Suspect]
     Dosage: UNK
     Dates: start: 20011101, end: 20110101
  3. PROAIR HFA [Concomitant]
     Dosage: 2 PUFF(S), QID PRN
     Dates: start: 20101109
  4. CELEXA [Concomitant]
     Indication: DEPRESSION
     Dosage: 20 MG, ONE TABLET QD
     Route: 048
     Dates: start: 20101210
  5. CLARITHROMYCIN [Concomitant]
  6. NAPROXEN (ALEVE) [Concomitant]
     Dosage: 750 MG, UNK
  7. YASMIN [Suspect]
     Dosage: UNK
     Dates: start: 20011101, end: 20110101
  8. VICODIN [Concomitant]
  9. CITALOPRAM HYDROBROMIDE [Concomitant]
     Dosage: 20 MG,ONE TABLET QD
     Route: 048
     Dates: start: 20101210
  10. NAPRELAN [Concomitant]
     Dosage: 750 MG, UNK
  11. ULTRACET [Concomitant]
     Indication: PAIN
  12. LO/OVRAL [Concomitant]
  13. AMOXICILLIN [Concomitant]
     Dosage: 500MG ONE CAPSULE THREE TIMES DAILY
     Route: 048
     Dates: start: 20101109

REACTIONS (3)
  - PULMONARY EMBOLISM [None]
  - INJURY [None]
  - PAIN [None]
